FAERS Safety Report 10253219 (Version 1)
Quarter: 2014Q2

REPORT INFORMATION
  Report Type: Spontaneous
  Country: US (occurrence: US)
  Receive Date: 20140623
  Receipt Date: 20140623
  Transmission Date: 20141212
  Serious: No
  Sender: FDA-Public Use
  Company Number: US-ZOGENIX, INC.-2011ZX000445

PATIENT
  Sex: Male
  Weight: 56.75 kg

DRUGS (23)
  1. SUMAVEL DOSEPRO [Suspect]
     Indication: MIGRAINE
  2. AMLODIPINE [Concomitant]
     Indication: BLOOD PRESSURE
     Route: 048
  3. DITROPAN XL [Concomitant]
     Indication: PRODUCT USED FOR UNKNOWN INDICATION
  4. IRON SULFATE [Concomitant]
     Indication: ANAEMIA
     Route: 048
  5. TAMSULOSIN [Concomitant]
     Indication: PRODUCT USED FOR UNKNOWN INDICATION
     Route: 048
  6. LIDODERM [Concomitant]
     Indication: ARTHRITIS
     Route: 062
  7. POLYETHYLENE GLYCOL 3350 [Concomitant]
     Indication: PRODUCT USED FOR UNKNOWN INDICATION
     Route: 048
  8. MULTIVITAMINS [Concomitant]
     Indication: PRODUCT USED FOR UNKNOWN INDICATION
  9. PROSCAR [Concomitant]
     Indication: PRODUCT USED FOR UNKNOWN INDICATION
     Route: 048
  10. RAPAMUNE [Concomitant]
     Indication: IMMUNOSUPPRESSION
  11. REQUIP [Concomitant]
     Indication: RESTLESS LEGS SYNDROME
     Route: 048
  12. TRAZODONE [Concomitant]
     Indication: DEPRESSION
     Route: 048
  13. FENOFIBRATE [Concomitant]
     Indication: BLOOD CHOLESTEROL
     Route: 048
  14. FENTANYL [Concomitant]
     Indication: PRODUCT USED FOR UNKNOWN INDICATION
     Route: 062
  15. FOSAMAX [Concomitant]
     Indication: OSTEOPOROSIS
     Route: 048
  16. FROVATRIPTAN [Concomitant]
     Indication: MIGRAINE
     Route: 048
  17. SUMATRIPTAN [Concomitant]
     Indication: MIGRAINE
     Route: 048
  18. METOCLOPRAMIDE [Concomitant]
     Indication: PROPHYLAXIS OF NAUSEA AND VOMITING
     Route: 048
  19. OXYCODONE AND ACETAMINOPHEN [Concomitant]
     Indication: MIGRAINE
     Route: 048
  20. CHLORZOXAZONE [Concomitant]
     Indication: MUSCLE SPASMS
  21. MUPIROCIN [Concomitant]
     Indication: FOLLICULITIS
  22. SCALPICIN [Concomitant]
     Indication: PRURITUS
  23. AMOXICILLIN [Concomitant]
     Indication: DENTAL DISORDER PROPHYLAXIS

REACTIONS (2)
  - Injection site haemorrhage [Recovered/Resolved]
  - Injection site pain [Recovered/Resolved]
